FAERS Safety Report 10461388 (Version 1)
Quarter: 2014Q3

REPORT INFORMATION
  Report Type: Spontaneous
  Country: US (occurrence: FR)
  Receive Date: 20140918
  Receipt Date: 20140918
  Transmission Date: 20150326
  Serious: Yes (Hospitalization)
  Sender: FDA-Public Use
  Company Number: 2014SP005323

PATIENT
  Age: 63 Year
  Sex: Male

DRUGS (14)
  1. IMOVANE [Concomitant]
     Active Substance: ZOPICLONE
  2. ESOMEPRAZOLE MAGNESIUM. [Concomitant]
     Active Substance: ESOMEPRAZOLE MAGNESIUM
  3. ZYVOXID [Concomitant]
     Active Substance: LINEZOLID
     Dates: start: 20140317
  4. TAHOR [Concomitant]
     Active Substance: ATORVASTATIN CALCIUM
  5. LOVENOX [Concomitant]
     Active Substance: ENOXAPARIN SODIUM
  6. DAFALGAN [Concomitant]
     Active Substance: ACETAMINOPHEN
  7. TEMERIT [Concomitant]
     Active Substance: NEBIVOLOL
  8. TRAMADOL HYDROCHLORIDE. [Concomitant]
     Active Substance: TRAMADOL HYDROCHLORIDE
  9. VANCOMYCIN [Suspect]
     Active Substance: VANCOMYCIN
     Indication: PRODUCT USED FOR UNKNOWN INDICATION
     Dates: start: 20140317, end: 20140407
  10. SPASFON /00934601/ [Concomitant]
  11. PIPERACILLIN AND TAZOBACTAM [Suspect]
     Active Substance: PIPERACILLIN SODIUM\TAZOBACTAM SODIUM
     Indication: PRODUCT USED FOR UNKNOWN INDICATION
     Dates: start: 20140317
  12. VENOFER [Concomitant]
     Active Substance: IRON SUCROSE
     Dates: start: 20140402, end: 20140404
  13. KARDEGIC [Concomitant]
     Active Substance: ASPIRIN LYSINE
  14. NEURONTIN [Concomitant]
     Active Substance: GABAPENTIN

REACTIONS (3)
  - Toxic skin eruption [Recovered/Resolved]
  - Papule [Recovered/Resolved]
  - Rash [Recovered/Resolved]

NARRATIVE: CASE EVENT DATE: 20140407
